FAERS Safety Report 7727222-6 (Version None)
Quarter: 2011Q3

REPORT INFORMATION
  Report Type: 
  Country: None (occurrence: None)
  Receive Date: 20110902
  Receipt Date: 20110829
  Transmission Date: 20111222
  Serious: No
  Sender: FDA-Public Use
  Company Number: US-BAYER-2011-080269

PATIENT
  Age: 26 Year
  Sex: Female

DRUGS (2)
  1. BEYAZ [Suspect]
     Indication: MENSTRUAL CYCLE MANAGEMENT
  2. BEYAZ [Suspect]
     Indication: CONTRACEPTION
     Dosage: UNK
     Route: 048
     Dates: start: 20110808

REACTIONS (3)
  - BACK PAIN [None]
  - ABDOMINAL PAIN LOWER [None]
  - METRORRHAGIA [None]
